FAERS Safety Report 4408407-3 (Version None)
Quarter: 2004Q3

REPORT INFORMATION
  Report Type: 
  Country: None (occurrence: None)
  Receive Date: 20040722
  Receipt Date: 20040716
  Transmission Date: 20050211
  Serious: Yes (Life-Threatening)
  Sender: FDA-Public Use
  Company Number: 238168

PATIENT
  Age: 56 Year
  Sex: Male
  Weight: 116.3 kg

DRUGS (7)
  1. NOVOLOG MIX 70/30 [Suspect]
     Indication: DIABETES MELLITUS NON-INSULIN-DEPENDENT
     Dosage: 257 IU, QD, SUBCUTANEOUS : 250 IU, QD, SUBCUTANEOUS
     Route: 058
     Dates: start: 20040701, end: 20040714
  2. NOVOLOG MIX 70/30 [Suspect]
     Indication: DIABETES MELLITUS NON-INSULIN-DEPENDENT
     Dosage: 257 IU, QD, SUBCUTANEOUS : 250 IU, QD, SUBCUTANEOUS
     Route: 058
     Dates: start: 20040715
  3. METFORMIN HCL [Concomitant]
  4. ATENOLOL [Concomitant]
  5. ACCUPRIL [Concomitant]
  6. ACETYLSALICYLIC ACID SRT [Concomitant]
  7. ZOCOR [Concomitant]

REACTIONS (7)
  - CONTUSION [None]
  - EXCORIATION [None]
  - HYPOGLYCAEMIA [None]
  - INJURY [None]
  - LACERATION [None]
  - PAIN [None]
  - ROAD TRAFFIC ACCIDENT [None]
